FAERS Safety Report 5941222-8 (Version None)
Quarter: 2008Q4

REPORT INFORMATION
  Report Type: 
  Country: None (occurrence: None)
  Receive Date: 20081104
  Receipt Date: 20081023
  Transmission Date: 20090506
  Serious: Yes (Death)
  Sender: FDA-Public Use
  Company Number: JP-PFIZER INC-2008088348

PATIENT
  Sex: Female

DRUGS (2)
  1. HALCION [Suspect]
     Dosage: TEXT:200 TABLETS
     Route: 048
  2. SILECE [Suspect]
     Route: 048

REACTIONS (2)
  - OVERDOSE [None]
  - POISONING [None]
